FAERS Safety Report 18582514 (Version 1)
Quarter: 2020Q4

REPORT INFORMATION
  Report Type: Spontaneous
  Country: US (occurrence: US)
  Receive Date: 20201205
  Receipt Date: 20201205
  Transmission Date: 20210114
  Serious: Yes (Other)
  Sender: FDA-Public Use
  Company Number: US-NOVITIUMPHARMA-2020USNVP00126

PATIENT
  Sex: Male
  Weight: 3.47 kg

DRUGS (8)
  1. CAPTOPRIL. [Interacting]
     Active Substance: CAPTOPRIL
     Route: 065
  2. SIROLIMUS. [Suspect]
     Active Substance: SIROLIMUS
     Indication: ANGIOSARCOMA
     Route: 065
  3. DIGOXIN. [Interacting]
     Active Substance: DIGOXIN
     Route: 065
  4. METHYLPREDNISOLONE. [Concomitant]
     Active Substance: METHYLPREDNISOLONE
     Indication: ANGIOSARCOMA
     Route: 065
  5. FUROSEMIDE. [Interacting]
     Active Substance: FUROSEMIDE
     Route: 065
  6. SIROLIMUS. [Suspect]
     Active Substance: SIROLIMUS
     Indication: ANGIOSARCOMA
  7. MILRINONE [Interacting]
     Active Substance: MILRINONE
     Route: 065
  8. DOPAMINE [Interacting]
     Active Substance: DOPAMINE HYDROCHLORIDE
     Route: 065

REACTIONS (4)
  - Off label use [Unknown]
  - Generalised oedema [Unknown]
  - Drug level above therapeutic [Unknown]
  - Acidosis [Unknown]
